FAERS Safety Report 10360027 (Version 4)
Quarter: 2014Q3

REPORT INFORMATION
  Report Type: Spontaneous
  Country: JP (occurrence: JP)
  Receive Date: 20140804
  Receipt Date: 20140901
  Transmission Date: 20150326
  Serious: Yes (Hospitalization)
  Sender: FDA-Public Use
  Company Number: JP-009507513-1407JPN014393

PATIENT
  Age: 64 Year
  Sex: Male
  Weight: 61 kg

DRUGS (9)
  1. FLUCONAZOLE. [Concomitant]
     Active Substance: FLUCONAZOLE
     Indication: FEBRILE NEUTROPENIA
     Dosage: 200 MG, INTERVAL: 1 DAY
     Route: 048
     Dates: start: 20140607, end: 20140701
  2. CANCIDAS [Suspect]
     Active Substance: CASPOFUNGIN ACETATE
     Indication: FEBRILE NEUTROPENIA
     Dosage: 50 MG, QD
     Route: 041
     Dates: start: 20140703, end: 20140711
  3. CANCIDAS [Suspect]
     Active Substance: CASPOFUNGIN ACETATE
     Indication: FEBRILE NEUTROPENIA
     Dosage: 70 MG, QD
     Route: 041
     Dates: start: 20140702, end: 20140702
  4. NEUTROGIN [Concomitant]
     Active Substance: LENOGRASTIM
     Indication: STEM CELL TRANSPLANT
     Dosage: 300 MICROGRAM, QD
     Route: 042
     Dates: start: 20140629, end: 20140704
  5. PROGRAF [Concomitant]
     Active Substance: TACROLIMUS\TACROLIMUS ANHYDROUS
     Indication: IMMUNOSUPPRESSION
     Dosage: 0.9 MG, QD
     Route: 042
     Dates: start: 20140619, end: 20140718
  6. TAKEPRON [Concomitant]
     Active Substance: LANSOPRAZOLE
     Indication: PROPHYLAXIS AGAINST GASTROINTESTINAL ULCER
     Dosage: 30 MG, BID
     Route: 042
     Dates: start: 20140701, end: 20140716
  7. ELNEOPA NO. 2 [Concomitant]
     Active Substance: UNSPECIFIED INGREDIENT
     Indication: MALNUTRITION
     Dosage: 1 L, QD
     Route: 042
     Dates: start: 20140628, end: 20140715
  8. MAXIPIME [Concomitant]
     Active Substance: CEFEPIME HYDROCHLORIDE
     Indication: FEBRILE NEUTROPENIA
     Dosage: 2 G, BID
     Route: 042
     Dates: start: 20140701, end: 20140709
  9. VICCLOX [Concomitant]
     Active Substance: ACYCLOVIR SODIUM
     Indication: ANTIVIRAL PROPHYLAXIS
     Dosage: 250 MG, TID
     Route: 042
     Dates: start: 20140701, end: 20140718

REACTIONS (2)
  - Fungal infection [Recovered/Resolved]
  - Drug ineffective [Unknown]

NARRATIVE: CASE EVENT DATE: 20140709
